FAERS Safety Report 9470252 (Version 2)
Quarter: 2013Q3

REPORT INFORMATION
  Report Type: Spontaneous
  Country: US (occurrence: US)
  Receive Date: 20130822
  Receipt Date: 20130822
  Transmission Date: 20140515
  Serious: Yes (Other)
  Sender: FDA-Public Use
  Company Number: US-SANOFI-AVENTIS-2013SA047399

PATIENT
  Age: 53 Year
  Sex: Male
  Weight: 117.93 kg

DRUGS (2)
  1. MULTAQ [Suspect]
     Indication: HEART RATE IRREGULAR
     Route: 048
     Dates: start: 20120501
  2. MULTAQ [Suspect]
     Indication: ATRIAL FIBRILLATION
     Route: 048
     Dates: start: 20120501

REACTIONS (1)
  - Cerebrovascular accident [Unknown]
